FAERS Safety Report 20107149 (Version 2)
Quarter: 2021Q4

REPORT INFORMATION
  Report Type: Spontaneous
  Country: CA (occurrence: CA)
  Receive Date: 20211124
  Receipt Date: 20211216
  Transmission Date: 20220303
  Serious: Yes (Other)
  Sender: FDA-Public Use
  Company Number: CA-CELGENE-CAN-20211105080

PATIENT
  Age: 68 Year
  Sex: Female

DRUGS (4)
  1. POMALIDOMIDE [Suspect]
     Active Substance: POMALIDOMIDE
     Indication: Product used for unknown indication
     Route: 048
  2. IXAZOMIB [Suspect]
     Active Substance: IXAZOMIB
     Indication: Plasma cell myeloma
     Route: 048
  3. IXAZOMIB [Suspect]
     Active Substance: IXAZOMIB
     Route: 048
  4. PREDNISONE [Suspect]
     Active Substance: PREDNISONE
     Indication: Product used for unknown indication
     Route: 048

REACTIONS (3)
  - Lower respiratory tract infection [Unknown]
  - Platelet count decreased [Unknown]
  - Off label use [Unknown]
